FAERS Safety Report 5000505-9 (Version None)
Quarter: 2006Q2

REPORT INFORMATION
  Report Type: 
  Country: None (occurrence: None)
  Receive Date: 20060501
  Receipt Date: 20060416
  Transmission Date: 20061013
  Serious: Yes (Hospitalization)
  Sender: FDA-Public Use
  Company Number: 2006051663

PATIENT
  Age: 29 Year
  Sex: Female
  Weight: 81.6475 kg

DRUGS (4)
  1. LYRICA [Suspect]
     Indication: ILL-DEFINED DISORDER
     Dosage: 175 MG, ORAL
     Route: 048
  2. XANAX [Concomitant]
  3. LORCET-HD [Concomitant]
  4. SPIRIVA [Concomitant]

REACTIONS (1)
  - OVERDOSE [None]
